FAERS Safety Report 16790011 (Version 2)
Quarter: 2019Q3

REPORT INFORMATION
  Report Type: Report from Study
  Country: US (occurrence: US)
  Receive Date: 20190910
  Receipt Date: 20190917
  Transmission Date: 20191005
  Serious: No
  Sender: FDA-Public Use
  Company Number: US-SA-2019SA250845

PATIENT
  Age: 62 Year
  Sex: Female

DRUGS (2)
  1. TERIFLUNOMIDE. [Suspect]
     Active Substance: TERIFLUNOMIDE
     Dosage: 14 MG, QW
     Route: 048
     Dates: start: 20190814
  2. TERIFLUNOMIDE. [Suspect]
     Active Substance: TERIFLUNOMIDE
     Indication: MULTIPLE SCLEROSIS
     Dosage: 14 MG, QD
     Route: 048
     Dates: start: 20190726

REACTIONS (5)
  - Headache [Unknown]
  - Fatigue [Unknown]
  - White blood cell count decreased [Unknown]
  - Product use issue [Unknown]
  - Rash generalised [Unknown]

NARRATIVE: CASE EVENT DATE: 20190814
